FAERS Safety Report 21352740 (Version 1)
Quarter: 2022Q3

REPORT INFORMATION
  Report Type: Spontaneous
  Country: JP (occurrence: JP)
  Receive Date: 20220920
  Receipt Date: 20220920
  Transmission Date: 20221027
  Serious: Yes (Other)
  Sender: FDA-Public Use
  Company Number: JP-AUROBINDO-AUR-APL-2022-032650

PATIENT
  Age: 76 Year
  Sex: Female

DRUGS (2)
  1. FOLOTYN [Suspect]
     Active Substance: PRALATREXATE
     Indication: Peripheral T-cell lymphoma unspecified
     Dosage: 20 MILLIGRAM
     Route: 042
     Dates: start: 201802
  2. FORODESINE HYDROCHLORIDE [Suspect]
     Active Substance: FORODESINE HYDROCHLORIDE
     Indication: Peripheral T-cell lymphoma unspecified
     Dosage: 100 MILLIGRAM, ONCE A DAY
     Route: 048
     Dates: start: 20200707

REACTIONS (6)
  - Tumour invasion [Recovered/Resolved]
  - Platelet count decreased [Recovered/Resolved]
  - Diarrhoea [Recovered/Resolved]
  - Skin lesion [Recovered/Resolved]
  - Decreased appetite [Recovered/Resolved]
  - Loss of personal independence in daily activities [Recovered/Resolved]
